FAERS Safety Report 18522468 (Version 1)
Quarter: 2020Q4

REPORT INFORMATION
  Report Type: Spontaneous
  Country: CN (occurrence: CN)
  Receive Date: 20201119
  Receipt Date: 20201119
  Transmission Date: 20210114
  Serious: Yes (Hospitalization, Other)
  Sender: FDA-Public Use
  Company Number: CN-GLAXOSMITHKLINE-CN2020APC224230

PATIENT
  Age: 67 Year
  Sex: Male

DRUGS (1)
  1. DICLOFENAC SODIUM. [Suspect]
     Active Substance: DICLOFENAC SODIUM
     Indication: MENISCUS INJURY
     Dosage: UNK

REACTIONS (26)
  - Small intestinal stenosis [Recovered/Resolved]
  - Gastrointestinal disorder [Recovered/Resolved]
  - Hypochromic anaemia [Recovered/Resolved]
  - Ileal ulcer [Recovered/Resolved]
  - Haemorrhage [Recovered/Resolved]
  - Hypoproteinaemia [Recovered/Resolved]
  - Pelvic fluid collection [Recovered/Resolved]
  - Abdominal pain [Recovered/Resolved]
  - Weight decreased [Recovered/Resolved]
  - Chronic gastritis [Recovered/Resolved]
  - Inflammation [Recovered/Resolved]
  - Hypoalbuminaemia [Recovered/Resolved]
  - Iron deficiency anaemia [Recovered/Resolved]
  - Pain [Recovered/Resolved]
  - Abdominal lymphadenopathy [Recovered/Resolved]
  - Mucosal erosion [Recovered/Resolved]
  - Decreased appetite [Recovered/Resolved]
  - Oedema peripheral [Recovered/Resolved]
  - Gastritis erosive [Recovered/Resolved]
  - Pallor [Recovered/Resolved]
  - Pleural effusion [Recovered/Resolved]
  - Fatigue [Recovered/Resolved]
  - Tenderness [Recovered/Resolved]
  - Gastrointestinal wall thickening [Recovered/Resolved]
  - Ascites [Recovered/Resolved]
  - Gastric ulcer [Recovered/Resolved]
